FAERS Safety Report 14874877 (Version 11)
Quarter: 2020Q2

REPORT INFORMATION
  Report Type: Spontaneous
  Country: US (occurrence: US)
  Receive Date: 20180510
  Receipt Date: 20200527
  Transmission Date: 20200713
  Serious: No
  Sender: FDA-Public Use
  Company Number: US-PFIZER INC-2018193537

PATIENT
  Age: 49 Year
  Sex: Female

DRUGS (2)
  1. IBRANCE [Suspect]
     Active Substance: PALBOCICLIB
     Indication: BREAST CANCER FEMALE
     Dosage: 125 MG, CYCLIC (DAILY, FOR 21 DAYS/28 DAYS)
     Route: 048
     Dates: start: 20180205, end: 20200131
  2. LETROZOLE. [Concomitant]
     Active Substance: LETROZOLE
     Dosage: UNK

REACTIONS (15)
  - Headache [Unknown]
  - Vomiting [Unknown]
  - Mobility decreased [Unknown]
  - Vertigo [Unknown]
  - Hot flush [Unknown]
  - Nasopharyngitis [Unknown]
  - Rash [Unknown]
  - Feeling hot [Unknown]
  - Vision blurred [Unknown]
  - Muscle spasms [Unknown]
  - Diarrhoea [Unknown]
  - Nausea [Unknown]
  - Arthralgia [Unknown]
  - Constipation [Unknown]
  - Chills [Unknown]

NARRATIVE: CASE EVENT DATE: 2018
